FAERS Safety Report 8030531-7 (Version None)
Quarter: 2011Q4

REPORT INFORMATION
  Report Type: 
  Country: None (occurrence: None)
  Receive Date: 20111130
  Receipt Date: 20110518
  Transmission Date: 20120403
  Serious: Yes (Hospitalization)
  Sender: FDA-Public Use
  Company Number: US200910001128

PATIENT
  Age: 59 Year
  Sex: Female

DRUGS (6)
  1. BYETTA [Suspect]
     Dates: start: 20060208, end: 20070618
  2. PROZAC [Concomitant]
  3. EXENATIDE UNK STRENGTH PEN, DISPOSABLE DEVICE (EXENATIDE PEN (UNKNOWN [Concomitant]
  4. TYLENOL /00020001/ (PARACETAMOL) [Concomitant]
  5. CALTRATE + D /00944201/ (CALCIUM CARBONATE) [Concomitant]
  6. JANUVIA [Concomitant]

REACTIONS (1)
  - PANCREATITIS ACUTE [None]
